FAERS Safety Report 6959673-1 (Version None)
Quarter: 2010Q3

REPORT INFORMATION
  Report Type: 
  Country: None (occurrence: None)
  Receive Date: 20100827
  Receipt Date: 20100818
  Transmission Date: 20110219
  Serious: Yes (Other)
  Sender: FDA-Public Use
  Company Number: 2010MA001837

PATIENT
  Sex: Male

DRUGS (3)
  1. LIDOCAINE HYDROCHLORIDE [Suspect]
     Indication: IRIDECTOMY
  2. CON MEDS [Concomitant]
  3. PREV MEDS [Concomitant]

REACTIONS (2)
  - BLINDNESS TRANSIENT [None]
  - PUPILLARY REFLEX IMPAIRED [None]
